FAERS Safety Report 8078408-5 (Version None)
Quarter: 2012Q1

REPORT INFORMATION
  Report Type: 
  Country: None (occurrence: None)
  Receive Date: 20120127
  Receipt Date: 20110209
  Transmission Date: 20120608
  Serious: No
  Sender: FDA-Public Use
  Company Number: US-ABBOTT-10P-163-0652042-00

PATIENT
  Sex: Male

DRUGS (9)
  1. METFORMIN HCL [Concomitant]
     Indication: DIABETES MELLITUS
  2. TOPIRAMATE [Concomitant]
     Indication: NEUROPATHY PERIPHERAL
  3. HUMIRA [Suspect]
     Indication: PSORIATIC ARTHROPATHY
     Dates: start: 20100101
  4. HUMIRA [Suspect]
     Dates: start: 20100501
  5. TOPIRAMATE [Concomitant]
     Indication: TREMOR
  6. SIMVASTATIN [Concomitant]
     Indication: PRODUCT USED FOR UNKNOWN INDICATION
  7. LYRICA [Concomitant]
     Indication: TREMOR
  8. LANTUS [Concomitant]
     Indication: DIABETES MELLITUS
  9. LYRICA [Concomitant]
     Indication: NEUROPATHY PERIPHERAL

REACTIONS (3)
  - INJECTION SITE HAEMATOMA [None]
  - INJECTION SITE PAIN [None]
  - DEVICE MALFUNCTION [None]
